FAERS Safety Report 14910037 (Version 1)
Quarter: 2018Q2

REPORT INFORMATION
  Report Type: Spontaneous
  Country: US (occurrence: US)
  Receive Date: 20180517
  Receipt Date: 20180517
  Transmission Date: 20180711
  Serious: No
  Sender: FDA-Public Use
  Company Number: US-BAYER-2018-092202

PATIENT
  Sex: Female

DRUGS (1)
  1. KYLEENA [Suspect]
     Active Substance: LEVONORGESTREL
     Indication: CONTRACEPTION
     Dosage: 17.5 MCG/24HR, CONT
     Route: 015
     Dates: start: 201802

REACTIONS (5)
  - Thinking abnormal [Unknown]
  - Depression [Unknown]
  - Procedural pain [Unknown]
  - Crying [Unknown]
  - Personality change [Unknown]

NARRATIVE: CASE EVENT DATE: 2018
